FAERS Safety Report 12603545 (Version 1)
Quarter: 2016Q3

REPORT INFORMATION
  Report Type: Spontaneous
  Country: US (occurrence: US)
  Receive Date: 20160728
  Receipt Date: 20160728
  Transmission Date: 20161109
  Serious: No
  Sender: FDA-Public Use
  Company Number: US-BAYER-2016-146432

PATIENT
  Age: 51 Year
  Sex: Female

DRUGS (1)
  1. GADAVIST [Suspect]
     Active Substance: GADOBUTROL
     Indication: SCAN BRAIN
     Dosage: 6 ML, ONCE
     Dates: start: 20160726, end: 20160726

REACTIONS (2)
  - Rash [None]
  - Pruritus [Recovering/Resolving]

NARRATIVE: CASE EVENT DATE: 20160726
